FAERS Safety Report 9966589 (Version 1)
Quarter: 2014Q1

REPORT INFORMATION
  Report Type: Report from Study
  Country: US (occurrence: US)
  Receive Date: 20140305
  Receipt Date: 20140305
  Transmission Date: 20141002
  Serious: Yes (Hospitalization)
  Sender: FDA-Public Use
  Company Number: US-ABBVIE-13P-163-1121167-00

PATIENT
  Age: 12 Year
  Sex: Female
  Weight: 38.59 kg

DRUGS (6)
  1. HUMIRA [Suspect]
     Indication: COLITIS ULCERATIVE
     Dates: start: 201208, end: 201208
  2. HUMIRA [Suspect]
     Dates: end: 201307
  3. HUMIRA [Suspect]
     Dates: start: 201307
  4. LIALDA [Concomitant]
     Indication: COLITIS ULCERATIVE
  5. PROBIOTIC [Concomitant]
     Indication: COLITIS ULCERATIVE
  6. IRON [Concomitant]
     Indication: COLITIS ULCERATIVE

REACTIONS (11)
  - Colitis ulcerative [Not Recovered/Not Resolved]
  - Colitis ulcerative [Not Recovered/Not Resolved]
  - Lethargy [Not Recovered/Not Resolved]
  - Weight decreased [Not Recovered/Not Resolved]
  - Decreased appetite [Not Recovered/Not Resolved]
  - Alopecia [Not Recovered/Not Resolved]
  - Rectal haemorrhage [Recovered/Resolved]
  - Pyrexia [Not Recovered/Not Resolved]
  - Haematochezia [Unknown]
  - Colitis ulcerative [Unknown]
  - Fatigue [Not Recovered/Not Resolved]
